FAERS Safety Report 7728151-4 (Version None)
Quarter: 2011Q3

REPORT INFORMATION
  Report Type: 
  Country: None (occurrence: None)
  Receive Date: 20110905
  Receipt Date: 20110831
  Transmission Date: 20111222
  Serious: Yes (Hospitalization)
  Sender: FDA-Public Use
  Company Number: BR-BRISTOL-MYERS SQUIBB COMPANY-15746555

PATIENT
  Sex: Female

DRUGS (1)
  1. ONGLYZA [Suspect]
     Route: 048

REACTIONS (1)
  - PANCREATITIS [None]
